FAERS Safety Report 6446022-0 (Version None)
Quarter: 2009Q4

REPORT INFORMATION
  Report Type: 
  Country: None (occurrence: None)
  Receive Date: 20091119
  Receipt Date: 20090811
  Transmission Date: 20100525
  Serious: No
  Sender: FDA-Public Use
  Company Number: A0801633A

PATIENT
  Age: 26 Year
  Sex: Female

DRUGS (6)
  1. BUPROPION HYDROCHLORIDE [Suspect]
     Dosage: 200MG TWICE PER DAY
     Route: 048
     Dates: start: 20080801, end: 20080831
  2. LYRICA [Concomitant]
  3. CLONOPIN [Concomitant]
  4. REMERON [Concomitant]
  5. SINGULAIR [Concomitant]
  6. LODRANE [Concomitant]

REACTIONS (1)
  - DRUG INEFFECTIVE [None]
